FAERS Safety Report 9351488 (Version 1)
Quarter: 2013Q2

REPORT INFORMATION
  Report Type: Spontaneous
  Country: US (occurrence: US)
  Receive Date: 20130617
  Receipt Date: 20130617
  Transmission Date: 20140414
  Serious: No
  Sender: FDA-Public Use
  Company Number: US-009507513-1306USA006373

PATIENT
  Age: 11 Year
  Sex: Male

DRUGS (4)
  1. DULERA [Suspect]
     Dosage: 2 PUFF, TWICE DAILY
     Dates: start: 201212
  2. NASALCROM [Concomitant]
  3. NASONEX [Concomitant]
  4. ZYRTEE [Concomitant]

REACTIONS (2)
  - Cushing^s syndrome [Recovering/Resolving]
  - Adrenal disorder [Recovering/Resolving]
